FAERS Safety Report 8190525-8 (Version None)
Quarter: 2012Q1

REPORT INFORMATION
  Report Type: 
  Country: None (occurrence: None)
  Receive Date: 20120307
  Receipt Date: 20120224
  Transmission Date: 20120608
  Serious: Yes (Hospitalization)
  Sender: FDA-Public Use
  Company Number: US-ELI_LILLY_AND_COMPANY-US201009004045

PATIENT
  Sex: Male
  Weight: 85.17 kg

DRUGS (23)
  1. MULTI-VITAMINS [Concomitant]
     Indication: MEDICAL DIET
     Dates: start: 20051221
  2. ISOSORBIDE DINITRATE [Concomitant]
     Indication: CORONARY ARTERY DISEASE
     Dates: start: 20051221
  3. ZOFRAN [Concomitant]
     Indication: NAUSEA
     Dates: start: 20100720
  4. DURAGESIC-100 [Concomitant]
     Indication: MUSCULOSKELETAL CHEST PAIN
     Dates: start: 20100720, end: 20100907
  5. CARBOPLATIN [Suspect]
     Indication: NON-SMALL CELL LUNG CANCER
     Dosage: 6 AUC, DAY 1 EVERY 21 DAYS
     Route: 042
     Dates: start: 20100517, end: 20100720
  6. MS CONTIN [Concomitant]
     Indication: MUSCULOSKELETAL CHEST PAIN
     Dates: start: 20100907
  7. BEVACIZUMAB [Suspect]
     Indication: NON-SMALL CELL LUNG CANCER
     Dosage: 15 MG/KG, DAY 1 EVERY 21 DAYS
     Route: 042
     Dates: start: 20100517
  8. HYDROCODONE BITARTRATE [Concomitant]
     Indication: ARTHRALGIA
     Dates: start: 20051221, end: 20100921
  9. CLARITIN [Concomitant]
     Indication: SEASONAL ALLERGY
     Dates: start: 20051221
  10. NAPROXEN (ALEVE) [Concomitant]
     Indication: MUSCULOSKELETAL CHEST PAIN
     Dates: start: 20100823, end: 20100921
  11. VITAMIN B-12 [Concomitant]
     Dates: end: 20100720
  12. PEMETREXED [Suspect]
     Indication: NON-SMALL CELL LUNG CANCER
     Dosage: 500 MG/M2, DAY 1 EVERY 21 DAYS
     Route: 042
     Dates: start: 20100517
  13. ASPIRIN [Concomitant]
     Indication: PROPHYLAXIS
     Dosage: UNK, UNK
     Dates: start: 20051221
  14. METOPROLOL SUCCINATE [Concomitant]
     Indication: HYPERTENSION
     Dates: start: 20051221
  15. VITAMIN D [Concomitant]
     Indication: MEDICAL DIET
     Dates: start: 20051221, end: 20100921
  16. MIRALAX [Concomitant]
     Indication: CONSTIPATION
     Dates: start: 20100907
  17. PROTON PUMP INHIBITORS [Concomitant]
  18. HYDRALAZINE HCL [Concomitant]
     Indication: HYPERTENSION
     Dates: start: 20051221
  19. NITROLINGUAL [Concomitant]
     Indication: CORONARY ARTERY DISEASE
     Dates: start: 20051221
  20. AMLODIPINE [Concomitant]
     Indication: HYPERTENSION
     Dates: start: 20051221
  21. LORAZEPAM [Concomitant]
     Indication: ANXIETY
     Dates: start: 20051221
  22. LEXAPRO [Concomitant]
     Indication: DEPRESSION
     Dates: start: 20100125
  23. MORPHINE [Concomitant]
     Indication: MUSCULOSKELETAL CHEST PAIN
     Dates: start: 20100907

REACTIONS (1)
  - ANAEMIA [None]
